FAERS Safety Report 23331592 (Version 1)
Quarter: 2023Q4

REPORT INFORMATION
  Report Type: Spontaneous
  Country: US (occurrence: None)
  Receive Date: 20231222
  Receipt Date: 20231222
  Transmission Date: 20240110
  Serious: No
  Sender: FDA-Public Use
  Company Number: None

PATIENT
  Age: 38 Year
  Sex: Female
  Weight: 85.5 kg

DRUGS (5)
  1. AJOVY [Suspect]
     Active Substance: FREMANEZUMAB-VFRM
     Dates: start: 20231208
  2. AJOVY [Concomitant]
     Active Substance: FREMANEZUMAB-VFRM
  3. GABAPENTIN [Concomitant]
     Active Substance: GABAPENTIN
  4. VITAMINS [Concomitant]
     Active Substance: VITAMINS
  5. IRON [Concomitant]
     Active Substance: IRON

REACTIONS (7)
  - Insomnia [None]
  - Anxiety [None]
  - Chest discomfort [None]
  - Chest pain [None]
  - Nausea [None]
  - Constipation [None]
  - Weight increased [None]

NARRATIVE: CASE EVENT DATE: 20231208
